FAERS Safety Report 11986887 (Version 1)
Quarter: 2016Q1

REPORT INFORMATION
  Report Type: Spontaneous
  Country: US (occurrence: US)
  Receive Date: 20160202
  Receipt Date: 20160202
  Transmission Date: 20160526
  Serious: No
  Sender: FDA-Public Use
  Company Number: US-UCBSA-2015005460

PATIENT
  Age: 28 Year
  Sex: Female
  Weight: 58.96 kg

DRUGS (9)
  1. KEPPRA [Suspect]
     Active Substance: LEVETIRACETAM
     Dosage: 1200 MG, 2X/DAY (BID)
     Dates: start: 2015
  2. KEPPRA [Suspect]
     Active Substance: LEVETIRACETAM
     Indication: SEIZURE
     Dosage: 1500 MG, 2X/DAY (BID)
     Dates: start: 20060306, end: 20070601
  3. KEPPRA [Suspect]
     Active Substance: LEVETIRACETAM
     Dosage: 1000 MG, 2X/DAY (BID)
     Dates: start: 20070625
  4. FISH OIL [Concomitant]
     Active Substance: FISH OIL
     Indication: PRODUCT USED FOR UNKNOWN INDICATION
     Dosage: 1200 (2)
     Dates: start: 201409
  5. MULTIVITAMIN [Concomitant]
     Active Substance: VITAMINS
     Indication: PRODUCT USED FOR UNKNOWN INDICATION
  6. KEPPRA [Suspect]
     Active Substance: LEVETIRACETAM
     Dosage: 1500 MG, 2X/DAY (BID)
     Dates: start: 201501
  7. PNV [Concomitant]
     Indication: PRODUCT USED FOR UNKNOWN INDICATION
     Dosage: UNKNOWN DOSE
     Dates: start: 201402
  8. KEPPRA [Suspect]
     Active Substance: LEVETIRACETAM
     Dosage: 1250 MG, 2X/DAY (BID)
     Dates: start: 201411
  9. PRENATAL [Concomitant]
     Active Substance: VITAMINS
     Indication: PRODUCT USED FOR UNKNOWN INDICATION
     Dosage: UNK

REACTIONS (2)
  - Pregnancy [Unknown]
  - Seizure [Recovered/Resolved]

NARRATIVE: CASE EVENT DATE: 20070625
